FAERS Safety Report 6566629-X (Version None)
Quarter: 2010Q1

REPORT INFORMATION
  Report Type: 
  Country: None (occurrence: None)
  Receive Date: 20100202
  Receipt Date: 20100121
  Transmission Date: 20100710
  Serious: Yes (Death)
  Sender: FDA-Public Use
  Company Number: SE-GENENTECH-296607

PATIENT
  Age: 65 Year
  Sex: Male

DRUGS (7)
  1. MABTHERA [Suspect]
     Indication: LYMPHOMA
     Dosage: UNK
     Route: 042
     Dates: start: 20070301, end: 20070716
  2. DELTISON [Suspect]
     Indication: LYMPHOMA
     Dosage: UNK
     Route: 048
     Dates: start: 20070301, end: 20070716
  3. CYKLOFOSFAMID [Suspect]
     Indication: LYMPHOMA
     Dosage: UNK
     Route: 042
     Dates: start: 20070301, end: 20070716
  4. KALCIPOS-D [Concomitant]
     Indication: DRUG USE FOR UNKNOWN INDICATION
  5. PAMOL [Concomitant]
     Indication: DRUG USE FOR UNKNOWN INDICATION
  6. ACETYLCYSTEINE [Concomitant]
     Indication: DRUG USE FOR UNKNOWN INDICATION
     Dosage: 200 MG, UNK
  7. TRYPTIZOL [Concomitant]
     Indication: DRUG USE FOR UNKNOWN INDICATION
     Dosage: 10 MG, UNK

REACTIONS (1)
  - POLYNEUROPATHY [None]
